FAERS Safety Report 9171776 (Version 1)
Quarter: 2013Q1

REPORT INFORMATION
  Report Type: Spontaneous
  Country: US (occurrence: US)
  Receive Date: 20130319
  Receipt Date: 20130319
  Transmission Date: 20140127
  Serious: Yes (Other)
  Sender: FDA-Public Use
  Company Number: CHPA2013US004433

PATIENT
  Age: 72 Year
  Sex: Male

DRUGS (2)
  1. MAALOX ANTACID/ANTIGAS MAX QDTABS ASST [Suspect]
     Indication: ABDOMINAL PAIN UPPER
     Dosage: 1 DF, UNK
     Route: 048
  2. MAALOX ANTACID/ANTIGAS MAX QDTABS ASST [Suspect]
     Indication: ABDOMINAL DISTENSION

REACTIONS (4)
  - Nephrolithiasis [Recovered/Resolved]
  - Disease recurrence [Unknown]
  - Off label use [Unknown]
  - Expired drug administered [Unknown]
